FAERS Safety Report 12593660 (Version 9)
Quarter: 2019Q1

REPORT INFORMATION
  Report Type: Spontaneous
  Country: JP (occurrence: JP)
  Receive Date: 20160726
  Receipt Date: 20190123
  Transmission Date: 20190417
  Serious: Yes (Life-Threatening, Other)
  Sender: FDA-Public Use
  Company Number: JP-PFIZER INC-2016354480

PATIENT
  Age: 77 Year
  Sex: Female
  Weight: 35 kg

DRUGS (10)
  1. ELPLAT [Suspect]
     Active Substance: OXALIPLATIN
     Dosage: 100 MG, 1X/DAY
     Route: 041
     Dates: start: 20150209, end: 20150803
  2. ERBITUX [Concomitant]
     Active Substance: CETUXIMAB
     Dosage: UNK
  3. LEVOFOLINATE [Suspect]
     Active Substance: LEVOLEUCOVORIN CALCIUM
     Indication: RECTAL CANCER
     Dosage: UNK, 1X/DAY
     Route: 041
     Dates: start: 20100628, end: 20120730
  4. CAMPTO [Suspect]
     Active Substance: IRINOTECAN
     Indication: RECTAL CANCER
     Dosage: UNK, 1X/DAY
     Route: 041
     Dates: start: 20120910, end: 20150113
  5. AVASTIN [Suspect]
     Active Substance: BEVACIZUMAB
     Indication: RECTAL CANCER
     Dosage: UNK, 1X/DAY
     Route: 041
     Dates: start: 20150209, end: 20150803
  6. 5-FU [Concomitant]
     Active Substance: FLUOROURACIL
     Dosage: UNK
     Route: 040
     Dates: start: 20100628, end: 20120730
  7. ELPLAT [Suspect]
     Active Substance: OXALIPLATIN
     Indication: RECTAL CANCER
     Dosage: UNK, 1X/DAY
     Route: 041
     Dates: start: 20100628, end: 20120730
  8. LEVOFOLINATE [Suspect]
     Active Substance: LEVOLEUCOVORIN CALCIUM
     Dosage: UNK, 1X/DAY
     Route: 041
     Dates: start: 20120910, end: 20150113
  9. 5-FU [Concomitant]
     Active Substance: FLUOROURACIL
     Dosage: UNK
     Route: 040
     Dates: start: 20120910, end: 20150113
  10. XELODA [Concomitant]
     Active Substance: CAPECITABINE
     Dosage: 2400 MG, DAILY
     Dates: start: 20150209, end: 20150803

REACTIONS (3)
  - Rash [Unknown]
  - Aortic dissection [Recovering/Resolving]
  - Oesophageal perforation [Recovering/Resolving]
